FAERS Safety Report 24661633 (Version 1)
Quarter: 2024Q4

REPORT INFORMATION
  Report Type: Spontaneous
  Country: US (occurrence: US)
  Receive Date: 20241125
  Receipt Date: 20241125
  Transmission Date: 20250115
  Serious: No
  Sender: SANOFI AVENTIS
  Company Number: US-SA-2024SA338793

PATIENT
  Age: 59 Year
  Sex: Female

DRUGS (3)
  1. KEVZARA [Suspect]
     Active Substance: SARILUMAB
     Indication: Rheumatoid arthritis
     Dosage: 200 MG, QOW
     Route: 058
     Dates: start: 202410
  2. MYCOPHENOLIC ACID [Suspect]
     Active Substance: MYCOPHENOLIC ACID
     Dosage: UNK
  3. OFEV [Concomitant]
     Active Substance: NINTEDANIB
     Indication: Systemic sclerosis pulmonary
     Dosage: UNK

REACTIONS (4)
  - Vomiting [Unknown]
  - Diarrhoea [Unknown]
  - Constipation [Unknown]
  - Dehydration [Unknown]

NARRATIVE: CASE EVENT DATE: 20240101
